FAERS Safety Report 4635309-X (Version None)
Quarter: 2005Q2

REPORT INFORMATION
  Report Type: 
  Country: None (occurrence: None)
  Receive Date: 20050411
  Receipt Date: 20050331
  Transmission Date: 20051028
  Serious: Yes (Hospitalization)
  Sender: FDA-Public Use
  Company Number: US-2004-031099

PATIENT
  Age: 88 Year
  Sex: Male
  Weight: 90.7 kg

DRUGS (1)
  1. MAGNEVIST [Suspect]
     Indication: ANGIOGRAM
     Dosage: 40 ML, 1 DOSE, INTRAVENOUS
     Route: 042
     Dates: start: 20040825, end: 20040825

REACTIONS (7)
  - ASTHENIA [None]
  - CONTRAST MEDIA REACTION [None]
  - DISORIENTATION [None]
  - DYSPNOEA [None]
  - LOSS OF CONSCIOUSNESS [None]
  - NAUSEA [None]
  - UNRESPONSIVE TO VERBAL STIMULI [None]
